FAERS Safety Report 8082826-9 (Version None)
Quarter: 2012Q1

REPORT INFORMATION
  Report Type: 
  Country: None (occurrence: None)
  Receive Date: 20120127
  Receipt Date: 20110214
  Transmission Date: 20120608
  Serious: No
  Sender: FDA-Public Use
  Company Number: US-ABBOTT-11P-163-0705107-00

PATIENT
  Sex: Male
  Weight: 77.18 kg

DRUGS (1)
  1. HUMIRA [Suspect]
     Indication: PSORIASIS

REACTIONS (5)
  - INCREASED UPPER AIRWAY SECRETION [None]
  - COUGH [None]
  - PYREXIA [None]
  - BRONCHITIS [None]
  - SINUSITIS [None]
